FAERS Safety Report 17367892 (Version 1)
Quarter: 2020Q1

REPORT INFORMATION
  Report Type: Spontaneous
  Country: US (occurrence: US)
  Receive Date: 20200203
  Receipt Date: 20200203
  Transmission Date: 20200409
  Serious: Yes (Hospitalization, Other)
  Sender: FDA-Public Use
  Company Number: None

PATIENT
  Age: 45 Year
  Sex: Female

DRUGS (10)
  1. BUT/APAP/CAF [Concomitant]
  2. VYVANSE [Concomitant]
     Active Substance: LISDEXAMFETAMINE DIMESYLATE
  3. KETOROLAC [Concomitant]
     Active Substance: KETOROLAC TROMETHAMINE
  4. CEPHALEXIN. [Concomitant]
     Active Substance: CEPHALEXIN
  5. NAPROXEN. [Concomitant]
     Active Substance: NAPROXEN
  6. METRONIDAZOLE. [Concomitant]
     Active Substance: METRONIDAZOLE
  7. CEFDINIR. [Concomitant]
     Active Substance: CEFDINIR
  8. DOXYCYCL MONO [Concomitant]
  9. OXYCODONE AND ACETAMINOPHEN [Concomitant]
     Active Substance: ACETAMINOPHEN\OXYCODONE HYDROCHLORIDE
  10. HUMIRA [Suspect]
     Active Substance: ADALIMUMAB
     Indication: PRODUCT USED FOR UNKNOWN INDICATION
     Dosage: ?          OTHER FREQUENCY:EVERY 2 WEEKS;?
     Route: 058
     Dates: start: 20191211

REACTIONS (4)
  - Infection [None]
  - Abdominal pain [None]
  - Body temperature increased [None]
  - Diverticulitis [None]

NARRATIVE: CASE EVENT DATE: 20200121
